FAERS Safety Report 18035215 (Version 2)
Quarter: 2020Q4

REPORT INFORMATION
  Report Type: Spontaneous
  Country: US (occurrence: US)
  Receive Date: 20200717
  Receipt Date: 20201012
  Transmission Date: 20210113
  Serious: No
  Sender: FDA-Public Use
  Company Number: US-AMGEN-USA-20200205640

PATIENT
  Age: 43 Year
  Sex: Female

DRUGS (4)
  1. MELOXICAM. [Concomitant]
     Active Substance: MELOXICAM
     Route: 065
  2. CYCLOBENZAPRINE. [Concomitant]
     Active Substance: CYCLOBENZAPRINE
     Route: 065
  3. OTEZLA [Suspect]
     Active Substance: APREMILAST
     Indication: PSORIASIS
     Dosage: 30 MILLIGRAM, BID
     Route: 048
     Dates: start: 20190124
  4. OTEZLA [Suspect]
     Active Substance: APREMILAST
     Dosage: 30 MILLIGRAM, BID
     Route: 048
     Dates: start: 20190125

REACTIONS (3)
  - Rash erythematous [Not Recovered/Not Resolved]
  - Depression [Not Recovered/Not Resolved]
  - Psoriasis [Not Recovered/Not Resolved]
